FAERS Safety Report 9531446 (Version 1)
Quarter: 2013Q3

REPORT INFORMATION
  Report Type: Spontaneous
  Country: US (occurrence: None)
  Receive Date: 20130916
  Receipt Date: 20130916
  Transmission Date: 20140515
  Serious: Yes (Other)
  Sender: FDA-Public Use
  Company Number: None

PATIENT
  Age: 63 Year
  Sex: Female
  Weight: 47.17 kg

DRUGS (1)
  1. AMOXICILLIN [Suspect]
     Indication: SKIN GRAFT
     Route: 048
     Dates: start: 20130905, end: 20130912

REACTIONS (3)
  - Rash erythematous [None]
  - Urticaria [None]
  - Lip swelling [None]
